FAERS Safety Report 20561787 (Version 3)
Quarter: 2022Q2

REPORT INFORMATION
  Report Type: Spontaneous
  Country: US (occurrence: US)
  Receive Date: 20220307
  Receipt Date: 20220527
  Transmission Date: 20220721
  Serious: Yes (Death, Life-Threatening, Hospitalization, Other)
  Sender: FDA-Public Use
  Company Number: US-BAYER-2020-246186

PATIENT
  Age: 30 Year
  Sex: Male

DRUGS (7)
  1. DIPHENHYDRAMINE [Interacting]
     Active Substance: DIPHENHYDRAMINE
     Dosage: UNK
  2. ALPRAZOLAM [Interacting]
     Active Substance: ALPRAZOLAM
     Dosage: UNK
  3. ETIZOLAM [Interacting]
     Active Substance: ETIZOLAM
     Dosage: UNK
  4. CODEINE [Interacting]
     Active Substance: CODEINE
     Dosage: UNK
  5. MORPHINE [Suspect]
     Active Substance: MORPHINE
  6. HERBALS\TETRAHYDROCANNABINOL UNSPECIFIED [Suspect]
     Active Substance: HERBALS\TETRAHYDROCANNABINOL UNSPECIFIED
  7. HEROIN [Suspect]
     Active Substance: DIAMORPHINE

REACTIONS (8)
  - Brain oedema [Fatal]
  - Respiratory depression [Fatal]
  - Toxicity to various agents [Fatal]
  - Drug interaction [Fatal]
  - Snoring [Fatal]
  - Unresponsive to stimuli [Fatal]
  - Pulmonary oedema [Fatal]
  - Pulmonary congestion [Fatal]

NARRATIVE: CASE EVENT DATE: 20181201
